FAERS Safety Report 9928122 (Version 2)
Quarter: 2014Q1

REPORT INFORMATION
  Report Type: Spontaneous
  Country: US (occurrence: US)
  Receive Date: 20140227
  Receipt Date: 20140227
  Transmission Date: 20141002
  Serious: Yes (Other)
  Sender: FDA-Public Use
  Company Number: US-GE HEALTHCARE MEDICAL DIAGNOSTICS-OSCN-PR-1109S-0190

PATIENT
  Age: 48 Year
  Sex: Male

DRUGS (3)
  1. OMNISCAN [Suspect]
     Indication: RENAL ARTERY STENOSIS
     Route: 042
     Dates: start: 20040923, end: 20040923
  2. OPTIMARK [Suspect]
     Indication: SQUAMOUS CELL CARCINOMA
     Dates: start: 20051215, end: 20051215
  3. PHENERGAN [Concomitant]
     Indication: PRODUCT USED FOR UNKNOWN INDICATION

REACTIONS (1)
  - Nephrogenic systemic fibrosis [Not Recovered/Not Resolved]
